FAERS Safety Report 13353679 (Version 1)
Quarter: 2017Q1

REPORT INFORMATION
  Report Type: Spontaneous
  Country: US (occurrence: US)
  Receive Date: 20170319
  Receipt Date: 20170319
  Transmission Date: 20170429
  Serious: Yes (Disabling)
  Sender: FDA-Public Use
  Company Number: None

PATIENT
  Age: 44 Year
  Weight: 90 kg

DRUGS (2)
  1. AMITRIPTYLIN 25MG [Suspect]
     Active Substance: AMITRIPTYLINE
     Indication: BRAIN INJURY
     Dosage: ?          QUANTITY:60 TABLET(S);?
     Route: 048
     Dates: start: 20170309, end: 20170318
  2. AMITRIPTYLIN 25MG [Suspect]
     Active Substance: AMITRIPTYLINE
     Indication: MIGRAINE
     Dosage: ?          QUANTITY:60 TABLET(S);?
     Route: 048
     Dates: start: 20170309, end: 20170318

REACTIONS (9)
  - Vomiting [None]
  - Chills [None]
  - Epistaxis [None]
  - Photophobia [None]
  - Night sweats [None]
  - Headache [None]
  - Abdominal pain upper [None]
  - Heart rate increased [None]
  - Mood swings [None]

NARRATIVE: CASE EVENT DATE: 20170318
